FAERS Safety Report 13450864 (Version 1)
Quarter: 2017Q2

REPORT INFORMATION
  Report Type: Spontaneous
  Country: GB (occurrence: GB)
  Receive Date: 20170418
  Receipt Date: 20170418
  Transmission Date: 20170830
  Serious: Yes (Death, Hospitalization)
  Sender: FDA-Public Use
  Company Number: GB-ROCHE-1920773

PATIENT
  Sex: Male

DRUGS (4)
  1. MEROPENEM. [Concomitant]
     Active Substance: MEROPENEM
     Route: 042
  2. CEFTAZIDIME PENTAHYDRATE [Concomitant]
     Active Substance: CEFTAZIDIME
     Dosage: 750 MG/187.5 MG EVERY 24 HOURS BASED ON GFR 14ML/MIN
     Route: 065
  3. AMBISOME [Concomitant]
     Active Substance: AMPHOTERICIN B
     Route: 065
  4. GANCICLOVIR. [Suspect]
     Active Substance: GANCICLOVIR
     Indication: PRODUCT USED FOR UNKNOWN INDICATION
     Route: 065

REACTIONS (9)
  - Hepatic encephalopathy [Unknown]
  - Cerebrovascular accident [Fatal]
  - Renal transplant failure [Unknown]
  - Coma scale abnormal [Unknown]
  - Liver function test abnormal [Unknown]
  - Pseudomonas infection [Unknown]
  - Ascites [Unknown]
  - White blood cell count increased [Unknown]
  - Viral load increased [Unknown]

NARRATIVE: CASE EVENT DATE: 20170309
